FAERS Safety Report 18864635 (Version 12)
Quarter: 2021Q3

REPORT INFORMATION
  Report Type: Other
  Country: GB (occurrence: GB)
  Receive Date: 20210209
  Receipt Date: 20210921
  Transmission Date: 20211014
  Serious: Yes (Death, Life-Threatening, Hospitalization, Other)
  Sender: FDA-Public Use
  Company Number: GB-GLENMARK PHARMACEUTICALS-2021GMK052011

PATIENT

DRUGS (33)
  1. FELODIPINE. [Suspect]
     Active Substance: FELODIPINE
     Dosage: 10 MILLIGRAM, OD
     Route: 048
     Dates: end: 20180928
  2. HUMALOG [Suspect]
     Active Substance: INSULIN LISPRO
     Indication: DIABETES MELLITUS
     Dosage: 120 INTERNATIONAL UNIT, TID
     Route: 048
     Dates: end: 20180928
  3. HUMALOG [Suspect]
     Active Substance: INSULIN LISPRO
     Dosage: 360 MILLIGRAM, TID
     Route: 048
     Dates: end: 20180928
  4. CLOZAPINE. [Suspect]
     Active Substance: CLOZAPINE
     Dosage: 200 MILLIGRAM, QD
     Route: 048
     Dates: start: 20170317, end: 20180928
  5. FELODIPINE. [Suspect]
     Active Substance: FELODIPINE
     Dosage: 10 MILLIGRAM, QD
     Route: 048
     Dates: end: 20180928
  6. HUMALOG MIX50/50 [Suspect]
     Active Substance: INSULIN LISPRO
     Indication: DIABETES MELLITUS
     Dosage: 60 INTERNATIONAL UNIT, TID
     Route: 048
     Dates: end: 20180928
  7. PRAVASTATIN. [Suspect]
     Active Substance: PRAVASTATIN
     Dosage: 40 MILLIGRAM, QD (M QHS)
     Route: 048
  8. EZETIMIBE. [Suspect]
     Active Substance: EZETIMIBE
     Dosage: 10 MILLIGRAM, QD
     Route: 048
     Dates: end: 20180928
  9. HUMALOG MIX50/50 [Suspect]
     Active Substance: INSULIN LISPRO
     Dosage: 360 INTERNATIONAL UNIT, QD (360 INTERNATIONAL UNIT, ONCE A DAY, 120 IU, TID)
     Route: 048
     Dates: end: 20180928
  10. SERTRALINE HYDROCHLORIDE. [Suspect]
     Active Substance: SERTRALINE HYDROCHLORIDE
     Indication: DEPRESSION
     Dosage: 50 MILLIGRAM, QD AM
     Route: 048
     Dates: start: 201709, end: 20180928
  11. HUMALOG [Suspect]
     Active Substance: INSULIN LISPRO
     Dosage: 360 MILLIGRAM, QD
     Route: 048
  12. HUMALOG MIX50/50 [Suspect]
     Active Substance: INSULIN LISPRO
     Dosage: 60 INTERNATIONAL UNIT, TID
     Route: 048
     Dates: end: 20180928
  13. LOSARTAN. [Suspect]
     Active Substance: LOSARTAN
     Indication: HYPERTENSION
     Dosage: 100 MILLIGRAM, QD
     Route: 048
     Dates: end: 20180928
  14. SERTRALINE [Suspect]
     Active Substance: SERTRALINE HYDROCHLORIDE
     Indication: DEPRESSION
     Dosage: 50 MILLIGRAM, QD
     Route: 048
     Dates: start: 201709, end: 20180928
  15. HUMALOG [Suspect]
     Active Substance: INSULIN LISPRO
     Dosage: 120 INTERNATIONAL UNIT, TID
     Route: 048
     Dates: end: 20180928
  16. CLOZARIL [Suspect]
     Active Substance: CLOZAPINE
     Indication: SCHIZOPHRENIA
     Dosage: 200 MILLIGRAM, QD (200 MILLIGRAM, QD, (200 MG, PM, 1 DAY))
     Route: 048
     Dates: start: 20170317, end: 20180928
  17. HUMALOG MIX50/50 [Suspect]
     Active Substance: INSULIN LISPRO
     Dosage: 120 INTERNATIONAL UNIT, TID
     Route: 048
     Dates: end: 20180928
  18. LANSOPRAZOLE. [Suspect]
     Active Substance: LANSOPRAZOLE
     Indication: GASTROOESOPHAGEAL REFLUX DISEASE
     Dosage: 30 MILLIGRAM, QD
     Route: 065
     Dates: end: 20180928
  19. EZETIMIBE. [Suspect]
     Active Substance: EZETIMIBE
     Dosage: 10 MILLIGRAM, QD
     Route: 048
     Dates: end: 20180928
  20. LOSARTAN POTASSIUM. [Suspect]
     Active Substance: LOSARTAN POTASSIUM
     Indication: HYPERTENSION
     Dosage: 100 MILLIGRAM, QD
     Route: 048
     Dates: end: 20180928
  21. HUMALOG [Suspect]
     Active Substance: INSULIN LISPRO
     Dosage: 180 INTERNATIONAL UNIT, TID
     Route: 048
     Dates: end: 20180928
  22. FELODIPINE. [Suspect]
     Active Substance: FELODIPINE
     Indication: HYPERTENSION
     Dosage: 10 MILLIGRAM, QD
     Route: 048
     Dates: end: 20180928
  23. HUMALOG MIX50/50 [Suspect]
     Active Substance: INSULIN LISPRO
     Dosage: 120 INTERNATIONAL UNIT, TID
     Route: 048
     Dates: end: 20180928
  24. LANSOPRAZOLE. [Suspect]
     Active Substance: LANSOPRAZOLE
     Dosage: 30 MILLIGRAM, OD
     Route: 065
     Dates: end: 20180928
  25. PRAVASTATIN. [Suspect]
     Active Substance: PRAVASTATIN
     Dosage: 40 MILLIGRAM, QD (PM, QHS)
     Route: 048
  26. PRAVASTATIN SODIUM. [Suspect]
     Active Substance: PRAVASTATIN SODIUM
     Indication: BLOOD CHOLESTEROL INCREASED
     Dosage: 40 MILLIGRAM, QD
     Route: 048
  27. EZETIMIBE. [Suspect]
     Active Substance: EZETIMIBE
     Indication: BLOOD CHOLESTEROL INCREASED
     Dosage: 10 MILLIGRAM, OD
     Route: 048
     Dates: end: 20180928
  28. CLOZAPINE. [Suspect]
     Active Substance: CLOZAPINE
     Indication: SCHIZOPHRENIA
     Dosage: 200 MILLIGRAM, QD (PM)
     Route: 048
     Dates: start: 20170317, end: 20180928
  29. HUMALOG MIX50/50 [Suspect]
     Active Substance: INSULIN LISPRO
     Dosage: 120 INTERNATIONAL UNIT, TID
     Route: 048
     Dates: end: 20180928
  30. PRAVASTATIN. [Suspect]
     Active Substance: PRAVASTATIN
     Indication: BLOOD CHOLESTEROL INCREASED
     Dosage: 40 MILLIGRAM, QD (PM, QHS)
     Route: 048
  31. PRAVASTATIN. [Suspect]
     Active Substance: PRAVASTATIN
     Dosage: 40 MILLIGRAM, QD
     Route: 048
  32. AMLODIPINE [Suspect]
     Active Substance: AMLODIPINE BESYLATE
     Indication: HYPERTENSION
     Dosage: 100 MILLIGRAM, QD
     Route: 048
     Dates: start: 20180928, end: 20180928
  33. HUMALOG [Suspect]
     Active Substance: INSULIN LISPRO
     Dosage: 60 INTERNATIONAL UNIT, TID
     Route: 048
     Dates: end: 20180928

REACTIONS (4)
  - Multiple organ dysfunction syndrome [Fatal]
  - Loss of consciousness [Fatal]
  - Pneumonia [Fatal]
  - Incorrect route of product administration [Fatal]

NARRATIVE: CASE EVENT DATE: 2018
